FAERS Safety Report 16643478 (Version 1)
Quarter: 2019Q3

REPORT INFORMATION
  Report Type: Spontaneous
  Country: US (occurrence: US)
  Receive Date: 20190729
  Receipt Date: 20190729
  Transmission Date: 20191004
  Serious: No
  Sender: FDA-Public Use
  Company Number: US-JNJFOC-20190723068

PATIENT
  Age: 22 Year
  Sex: Male

DRUGS (1)
  1. RISPERDAL [Suspect]
     Active Substance: RISPERIDONE
     Indication: PRODUCT USED FOR UNKNOWN INDICATION
     Route: 065
     Dates: start: 200712, end: 201501

REACTIONS (5)
  - Libido decreased [Unknown]
  - Emotional distress [Unknown]
  - Muscle twitching [Unknown]
  - Weight increased [Unknown]
  - Breast enlargement [Unknown]

NARRATIVE: CASE EVENT DATE: 200801
